FAERS Safety Report 11360347 (Version 1)
Quarter: 2015Q3

REPORT INFORMATION
  Report Type: Report from Study
  Country: US (occurrence: US)
  Receive Date: 20150810
  Receipt Date: 20150810
  Transmission Date: 20151125
  Serious: Yes (Other)
  Sender: FDA-Public Use
  Company Number: PHEH2014US021949

PATIENT
  Age: 31 Year
  Sex: Female

DRUGS (4)
  1. EXTAVIA [Suspect]
     Active Substance: INTERFERON BETA-1B
     Dosage: 0.1875 MG, QOD (0.75 ML) WEEKS 5 TO 6
     Route: 058
  2. EXTAVIA [Suspect]
     Active Substance: INTERFERON BETA-1B
     Dosage: 0.25 MG, QOD (1 ML) FROM WEEK 7
     Route: 058
     Dates: end: 20140917
  3. EXTAVIA [Suspect]
     Active Substance: INTERFERON BETA-1B
     Indication: MULTIPLE SCLEROSIS
     Dosage: 0.0625 MG, QOD (0.25 ML) WEEKS 1 TO 2
     Route: 058
     Dates: start: 20140728
  4. EXTAVIA [Suspect]
     Active Substance: INTERFERON BETA-1B
     Dosage: 0.125 MG, QOD (0.5 ML) WEEKS 3 TO 4
     Route: 058

REACTIONS (2)
  - Visual impairment [Unknown]
  - Seizure [Unknown]

NARRATIVE: CASE EVENT DATE: 20140915
